FAERS Safety Report 13661010 (Version 6)
Quarter: 2018Q1

REPORT INFORMATION
  Report Type: Report from Study
  Country: JP (occurrence: JP)
  Receive Date: 20170616
  Receipt Date: 20180316
  Transmission Date: 20180508
  Serious: Yes (Hospitalization, Other)
  Sender: FDA-Public Use
  Company Number: JP-BRISTOL-MYERS SQUIBB COMPANY-BMS-2017-052799

PATIENT
  Age: 76 Year
  Sex: Male
  Weight: 58 kg

DRUGS (16)
  1. IPILIMUMAB [Suspect]
     Active Substance: IPILIMUMAB
     Indication: MALIGNANT MELANOMA STAGE III
     Dosage: 3 MG/KG, QD
     Route: 041
     Dates: start: 20160513, end: 20160513
  2. BAYASPIRIN [Concomitant]
     Active Substance: ASPIRIN
     Indication: ANGINA PECTORIS
     Dosage: 100 MG, UNK
     Route: 048
  3. CALONAL [Concomitant]
     Active Substance: ACETAMINOPHEN
     Indication: PRODUCT USED FOR UNKNOWN INDICATION
     Dosage: 500 MG, UNK
     Route: 048
     Dates: start: 20160604
  4. IPILIMUMAB [Suspect]
     Active Substance: IPILIMUMAB
     Indication: PRODUCT USED FOR UNKNOWN INDICATION
     Dosage: 3 MG/KG, QD
     Route: 041
     Dates: start: 20160729, end: 20160729
  5. TRAMCET [Concomitant]
     Active Substance: ACETAMINOPHEN\TRAMADOL
     Indication: MALIGNANT MELANOMA STAGE III
     Dosage: 3 DF, UNK
     Route: 048
     Dates: start: 20161018
  6. ALLEGRA [Concomitant]
     Active Substance: FEXOFENADINE HYDROCHLORIDE
     Indication: RASH
     Dosage: 120 MG, UNK
     Route: 048
     Dates: start: 20160603
  7. PREDNISOLONE. [Concomitant]
     Active Substance: PREDNISOLONE
     Indication: COLITIS
     Dosage: 20 MG, UNK
     Route: 048
     Dates: start: 20160615
  8. OPDIVO [Suspect]
     Active Substance: NIVOLUMAB
     Indication: MALIGNANT MELANOMA STAGE III
     Dosage: UNK
     Route: 041
     Dates: start: 20151002
  9. IPILIMUMAB [Suspect]
     Active Substance: IPILIMUMAB
     Indication: PRODUCT USED FOR UNKNOWN INDICATION
     Dosage: 3 MG/KG, QD
     Route: 041
     Dates: start: 20160603, end: 20160603
  10. SIMVASTATIN. [Concomitant]
     Active Substance: SIMVASTATIN
     Indication: HYPERLIPIDAEMIA
     Dosage: 1 DF, UNK
     Route: 048
  11. GASTER [Concomitant]
     Active Substance: FAMOTIDINE
     Indication: PROPHYLAXIS
     Dosage: 20 MG, UNK
     Route: 048
     Dates: start: 20160805, end: 20160913
  12. IPILIMUMAB [Suspect]
     Active Substance: IPILIMUMAB
     Indication: PRODUCT USED FOR UNKNOWN INDICATION
     Dosage: 3 MG/KG, QD
     Route: 041
     Dates: start: 20160624, end: 20160624
  13. RABEPRAZOLE SODIUM. [Concomitant]
     Active Substance: RABEPRAZOLE SODIUM
     Indication: ANGINA PECTORIS
     Dosage: 1 DF, UNK
     Route: 048
  14. GASMOTIN [Concomitant]
     Active Substance: MOSAPRIDE CITRATE
     Indication: MALIGNANT MELANOMA
     Dosage: 3 DF, UNK
     Route: 048
     Dates: start: 20160608, end: 20160615
  15. PRIMPERAN [Concomitant]
     Active Substance: METOCLOPRAMIDE HYDROCHLORIDE
     Indication: PROPHYLAXIS
     Dosage: 3 DF, UNK
     Route: 048
     Dates: start: 20161018, end: 20161025
  16. MAGMITT [Concomitant]
     Active Substance: MAGNESIUM OXIDE
     Indication: PROPHYLAXIS
     Dosage: 990 MG, UNK
     Route: 048
     Dates: start: 20161018

REACTIONS (6)
  - Renal disorder [Recovering/Resolving]
  - Colitis [Recovering/Resolving]
  - Hepatic function abnormal [Recovered/Resolved]
  - Diarrhoea [Recovering/Resolving]
  - Sialoadenitis [Recovering/Resolving]
  - Pyrexia [Recovered/Resolved]

NARRATIVE: CASE EVENT DATE: 20160608
